FAERS Safety Report 6687209-1 (Version None)
Quarter: 2010Q2

REPORT INFORMATION
  Report Type: 
  Country: None (occurrence: None)
  Receive Date: 20100419
  Receipt Date: 20100408
  Transmission Date: 20101027
  Serious: Yes (Death)
  Sender: FDA-Public Use
  Company Number: IN-BAXTER-2010BH009550

PATIENT
  Age: 30 Year
  Sex: Male

DRUGS (2)
  1. DIANEAL [Suspect]
     Indication: PERITONEAL DIALYSIS
     Route: 033
     Dates: start: 20100301, end: 20100315
  2. DIANEAL [Suspect]
     Route: 033
     Dates: start: 20100301, end: 20100315

REACTIONS (1)
  - MYOCARDIAL INFARCTION [None]
